FAERS Safety Report 9522438 (Version 1)
Quarter: 2013Q3

REPORT INFORMATION
  Report Type: Report from Study
  Country: US (occurrence: US)
  Receive Date: 20130913
  Receipt Date: 20130913
  Transmission Date: 20140515
  Serious: Yes (Hospitalization)
  Sender: FDA-Public Use
  Company Number: US-US-EMD SERONO, INC.-7236369

PATIENT
  Sex: Female
  Weight: 94 kg

DRUGS (3)
  1. REBIF [Suspect]
     Indication: MULTIPLE SCLEROSIS
     Route: 058
     Dates: start: 20061207
  2. TYLENOL                            /00020001/ [Concomitant]
     Indication: PREMEDICATION
  3. IBUPROFEN [Concomitant]
     Indication: PREMEDICATION

REACTIONS (2)
  - Intraductal proliferative breast lesion [Recovered/Resolved]
  - Injection site bruising [Not Recovered/Not Resolved]
